FAERS Safety Report 6630615-1 (Version None)
Quarter: 2010Q1

REPORT INFORMATION
  Report Type: 
  Country: None (occurrence: None)
  Receive Date: 20100311
  Receipt Date: 20090521
  Transmission Date: 20100710
  Serious: No
  Sender: FDA-Public Use
  Company Number: US-BIOGENIDEC-2009BI015811

PATIENT
  Age: 55 Year
  Sex: Female

DRUGS (1)
  1. AVONEX [Suspect]
     Indication: MULTIPLE SCLEROSIS
     Route: 030
     Dates: start: 20090506

REACTIONS (5)
  - DEPRESSION [None]
  - EYE PRURITUS [None]
  - OROPHARYNGEAL PAIN [None]
  - PRURITUS GENERALISED [None]
  - SKIN MASS [None]
